FAERS Safety Report 7623543-6 (Version None)
Quarter: 2011Q3

REPORT INFORMATION
  Report Type: 
  Country: None (occurrence: None)
  Receive Date: 20110720
  Receipt Date: 20110707
  Transmission Date: 20111222
  Serious: Yes (Other)
  Sender: FDA-Public Use
  Company Number: US-ELI_LILLY_AND_COMPANY-US201107002852

PATIENT
  Age: 57 Year
  Sex: Female

DRUGS (5)
  1. CYMBALTA [Suspect]
     Dosage: 90 MG, QD
     Dates: end: 20110623
  2. CYMBALTA [Suspect]
     Dosage: 120 MG, QD
  3. CYMBALTA [Suspect]
     Indication: DEPRESSION
     Dosage: 90 MG, QD
     Dates: start: 20070101
  4. ATENOLOL [Concomitant]
     Dosage: 50 MG, UNK
  5. PROVIGIL [Concomitant]

REACTIONS (13)
  - HEART VALVE INCOMPETENCE [None]
  - DRY EYE [None]
  - DRUG INEFFECTIVE [None]
  - CHEST DISCOMFORT [None]
  - CRYING [None]
  - VISUAL ACUITY REDUCED [None]
  - DRUG DOSE OMISSION [None]
  - BLOOD PRESSURE INCREASED [None]
  - HEADACHE [None]
  - INSOMNIA [None]
  - FATIGUE [None]
  - PULSE PRESSURE DECREASED [None]
  - DEPRESSED MOOD [None]
